FAERS Safety Report 9955407 (Version 1)
Quarter: 2014Q1

REPORT INFORMATION
  Report Type: Report from Study
  Country: US (occurrence: US)
  Receive Date: 20140304
  Receipt Date: 20140304
  Transmission Date: 20141002
  Serious: No
  Sender: FDA-Public Use
  Company Number: US-ABBVIE-13P-163-1078828-00

PATIENT
  Age: 45 Year
  Sex: Male

DRUGS (13)
  1. HUMIRA [Suspect]
     Indication: CROHN^S DISEASE
     Route: 058
     Dates: start: 20130304, end: 20130304
  2. HUMIRA [Suspect]
     Route: 058
     Dates: start: 20130318, end: 20130318
  3. COLESTIPOL [Concomitant]
     Indication: DIARRHOEA
     Dosage: 1 GM UP TO 12 TABLETS DAILY
     Route: 048
  4. GABAPENTIN [Concomitant]
     Indication: NEUROPATHY PERIPHERAL
  5. GENERIC WELLBUTRIN EX [Concomitant]
     Indication: DEPRESSION
     Dosage: 300 MG
     Route: 048
  6. GENERIC WELLBUTRIN EX [Concomitant]
     Indication: ANXIETY
  7. CLONIDINE [Concomitant]
     Indication: ANXIETY
     Route: 048
  8. ZOLPIDEM [Concomitant]
     Indication: INSOMNIA
     Dosage: 10 MG AT BEDTIME
     Route: 048
  9. DOXEPIN [Concomitant]
     Indication: ANXIETY
     Dosage: 50 MG DAILY
  10. DOXEPIN [Concomitant]
     Indication: DEPRESSION
  11. FLEXERIL [Concomitant]
     Indication: INTERVERTEBRAL DISC DEGENERATION
  12. PROTONIX [Concomitant]
     Indication: GASTROOESOPHAGEAL REFLUX DISEASE
     Dosage: 40 MG DAILY
  13. ACETAMINOPHEN [Concomitant]
     Indication: PAIN
     Dosage: 500 MG 2-3 TABLETS DAILY

REACTIONS (4)
  - Fistula [Not Recovered/Not Resolved]
  - Diarrhoea [Not Recovered/Not Resolved]
  - Abdominal discomfort [Not Recovered/Not Resolved]
  - Faeces discoloured [Not Recovered/Not Resolved]
